FAERS Safety Report 13298960 (Version 1)
Quarter: 2017Q1

REPORT INFORMATION
  Report Type: Spontaneous
  Country: US (occurrence: US)
  Receive Date: 20170306
  Receipt Date: 20170306
  Transmission Date: 20170428
  Serious: Yes (Hospitalization, Other)
  Sender: FDA-Public Use
  Company Number: US-BAYER-2017-039195

PATIENT
  Age: 89 Year
  Sex: Female

DRUGS (3)
  1. ACETYLSALICYLIC ACID({=100 MG) [Suspect]
     Active Substance: ASPIRIN
     Dosage: 81 MG, QD
  2. CLOPIDOGREL [Interacting]
     Active Substance: CLOPIDOGREL BISULFATE
     Dosage: 75 MG, QD
  3. WARFARIN [Interacting]
     Active Substance: WARFARIN

REACTIONS (4)
  - Drug administration error [None]
  - Gastrointestinal haemorrhage [None]
  - Labelled drug-drug interaction medication error [None]
  - Gastrointestinal haemorrhage [Unknown]
